FAERS Safety Report 21253935 (Version 2)
Quarter: 2022Q4

REPORT INFORMATION
  Report Type: Spontaneous
  Country: TW (occurrence: TW)
  Receive Date: 20220825
  Receipt Date: 20221018
  Transmission Date: 20230112
  Serious: Yes (Other)
  Sender: FDA-Public Use
  Company Number: TW-BAYER-2022A114552

PATIENT
  Age: 50 Year

DRUGS (1)
  1. JIVI [Suspect]
     Active Substance: DAMOCTOCOG ALFA PEGOL
     Indication: Factor VIII deficiency

REACTIONS (3)
  - Nephrolithiasis [None]
  - Renal haemorrhage [None]
  - Ureterolithiasis [None]

NARRATIVE: CASE EVENT DATE: 20140101
